FAERS Safety Report 7907330-7 (Version None)
Quarter: 2011Q4

REPORT INFORMATION
  Report Type: 
  Country: None (occurrence: None)
  Receive Date: 20111110
  Receipt Date: 20111102
  Transmission Date: 20120403
  Serious: Yes (Other)
  Sender: FDA-Public Use
  Company Number: JP-GLAXOSMITHKLINE-B0758882A

PATIENT
  Age: 57 Year
  Sex: Female

DRUGS (4)
  1. LITHIUM CARBONATE [Concomitant]
     Dosage: 400MG PER DAY
     Route: 048
     Dates: end: 20111020
  2. PAXIL [Suspect]
     Indication: BIPOLAR DISORDER
     Dosage: 40MG PER DAY
     Route: 048
     Dates: start: 20100101, end: 20111020
  3. SEROQUEL [Concomitant]
     Dosage: 125MG PER DAY
     Route: 048
     Dates: start: 20111018, end: 20111020
  4. CYMBALTA [Concomitant]
     Dosage: 40MG PER DAY
     Route: 048
     Dates: end: 20111020

REACTIONS (2)
  - SEROTONIN SYNDROME [None]
  - DEPRESSED LEVEL OF CONSCIOUSNESS [None]
